FAERS Safety Report 6252836-2 (Version None)
Quarter: 2009Q2

REPORT INFORMATION
  Report Type: 
  Country: None (occurrence: None)
  Receive Date: 20090629
  Receipt Date: 20090629
  Transmission Date: 20091009
  Serious: Yes (Other)
  Sender: FDA-Public Use
  Company Number: None

PATIENT
  Age: 73 Year
  Sex: Female
  Weight: 65.7716 kg

DRUGS (1)
  1. DEXPAK 1.5MG [Suspect]
     Indication: EXPOSURE TO TOXIC AGENT
     Dosage: TAPERED FROM 6 PER DAY TO 1 2X A DAY TO 1 LAST PO
     Route: 048
     Dates: start: 20090603, end: 20090615

REACTIONS (8)
  - BURNING SENSATION [None]
  - FACIAL PAIN [None]
  - FEELING ABNORMAL [None]
  - HUNGER [None]
  - INSOMNIA [None]
  - PSYCHOMOTOR HYPERACTIVITY [None]
  - RESTLESSNESS [None]
  - SWELLING FACE [None]
